FAERS Safety Report 17989341 (Version 1)
Quarter: 2020Q3

REPORT INFORMATION
  Report Type: Spontaneous
  Country: GB (occurrence: GB)
  Receive Date: 20200707
  Receipt Date: 20200707
  Transmission Date: 20201103
  Serious: Yes (Other)
  Sender: FDA-Public Use
  Company Number: GB-MYLANLABS-2020M1060323

PATIENT
  Age: 38 Year
  Sex: Female
  Weight: 52 kg

DRUGS (10)
  1. SOLVAZINC [Concomitant]
     Dosage: 1 DOSAGE FORM, QD
     Dates: start: 20181018
  2. GABAPENTIN. [Concomitant]
     Active Substance: GABAPENTIN
     Dosage: 2 DOSAGE FORM, QD
     Dates: start: 20200604
  3. MIRTAZAPINE. [Concomitant]
     Active Substance: MIRTAZAPINE
     Dosage: 1 DOSAGE FORM, QD (AT BEDTIME.)
     Dates: start: 20190205
  4. FOLIC ACID. [Concomitant]
     Active Substance: FOLIC ACID
     Dosage: 1 DOSAGE FORM, QD
     Dates: start: 20180503
  5. SERTRALINE [Suspect]
     Active Substance: SERTRALINE HYDROCHLORIDE
     Indication: PRODUCT USED FOR UNKNOWN INDICATION
     Dosage: 50 MILLIGRAM, QD
     Dates: start: 20181105
  6. CLONAZEPAM. [Concomitant]
     Active Substance: CLONAZEPAM
     Dosage: 1 DOSAGE FORM, PRN (AT NIGHT, AS NECESSARY)
     Dates: start: 20180503
  7. HYDROXOCOBALAMIN [Concomitant]
     Active Substance: HYDROXOCOBALAMIN
     Dosage: AS DIRECTED
     Dates: start: 20200203
  8. NEOMAG [Concomitant]
     Dosage: 6 DOSAGE FORM, QD (FOR 4 DAYS THE)
     Dates: start: 20181018
  9. FUROSEMIDE. [Concomitant]
     Active Substance: FUROSEMIDE
     Dosage: 1 DOSAGE FORM, QD (MORNING)
     Dates: start: 20200608
  10. AMITRIPTYLINE HYDROCHLORIDE. [Concomitant]
     Active Substance: AMITRIPTYLINE HYDROCHLORIDE
     Dosage: TAKE ONE OR TWO TABLET AT NIGHT.
     Dates: start: 20181123

REACTIONS (1)
  - Photodermatosis [Not Recovered/Not Resolved]
